FAERS Safety Report 14280882 (Version 1)
Quarter: 2017Q4

REPORT INFORMATION
  Report Type: Spontaneous
  Country: US (occurrence: US)
  Receive Date: 20171213
  Receipt Date: 20171213
  Transmission Date: 20180321
  Serious: Yes (Other)
  Sender: FDA-Public Use
  Company Number: None

PATIENT
  Age: 72 Year
  Sex: Female
  Weight: 64.9 kg

DRUGS (1)
  1. BUPIVACAINE. [Suspect]
     Active Substance: BUPIVACAINE
     Indication: SPINAL ANAESTHESIA
     Dosage: 3 ML ONCE SPINAL?
     Dates: start: 20171213

REACTIONS (3)
  - Product quality issue [None]
  - Drug ineffective [None]
  - Treatment failure [None]

NARRATIVE: CASE EVENT DATE: 20171213
